FAERS Safety Report 7998882-X (Version None)
Quarter: 2011Q4

REPORT INFORMATION
  Report Type: 
  Country: None (occurrence: None)
  Receive Date: 20111221
  Receipt Date: 20111219
  Transmission Date: 20120403
  Serious: Yes (Other)
  Sender: FDA-Public Use
  Company Number: US-GLAXOSMITHKLINE-A0958653A

PATIENT
  Age: 70 Year
  Sex: Female

DRUGS (8)
  1. ADVAIR DISKUS 100/50 [Suspect]
     Indication: ASTHMA
     Dosage: 1PUFF TWICE PER DAY
     Route: 055
     Dates: start: 20110701
  2. HYDROCHLOROTHIAZIDE [Concomitant]
  3. CLONAZEPAM [Concomitant]
  4. AMLODIPINE [Concomitant]
  5. CRESTOR [Concomitant]
  6. VITAMIN TAB [Concomitant]
  7. NAPROXEN (ALEVE) [Concomitant]
  8. CALCIUM [Concomitant]

REACTIONS (3)
  - ASTHMA [None]
  - COUGH [None]
  - INCREASED UPPER AIRWAY SECRETION [None]
